FAERS Safety Report 24538568 (Version 1)
Quarter: 2024Q4

REPORT INFORMATION
  Report Type: Spontaneous
  Country: MY (occurrence: MY)
  Receive Date: 20241023
  Receipt Date: 20241023
  Transmission Date: 20250114
  Serious: Yes (Hospitalization, Other)
  Sender: CADILA
  Company Number: MY-CPL-004693

PATIENT
  Age: 50 Year
  Sex: Male

DRUGS (3)
  1. OLANZAPINE [Interacting]
     Active Substance: OLANZAPINE
     Indication: Bipolar disorder
  2. LITHIUM [Interacting]
     Active Substance: LITHIUM
     Indication: Bipolar disorder
  3. TRIHEXYPHENIDYL [Interacting]
     Active Substance: TRIHEXYPHENIDYL
     Indication: Bipolar disorder

REACTIONS (4)
  - Neurotoxicity [Unknown]
  - Neuroleptic malignant syndrome [Recovered/Resolved]
  - Drug interaction [Unknown]
  - Drug level increased [Recovered/Resolved]
